FAERS Safety Report 24232891 (Version 1)
Quarter: 2024Q3

REPORT INFORMATION
  Report Type: Report from Study
  Country: EG (occurrence: EG)
  Receive Date: 20240821
  Receipt Date: 20240821
  Transmission Date: 20241017
  Serious: Yes (Hospitalization, Other)
  Sender: NOVARTIS
  Company Number: EG-002147023-NVSC2024EG167143

PATIENT
  Age: 22 Year
  Sex: Female
  Weight: 65 kg

DRUGS (4)
  1. GILENYA [Suspect]
     Active Substance: FINGOLIMOD HYDROCHLORIDE
     Indication: Multiple sclerosis
     Dosage: 1 DOSAGE FORM, QD (FROM 2 YEARS)
     Route: 048
     Dates: end: 20240815
  2. OMEGA 3 [Concomitant]
     Active Substance: CAPSAICIN
     Indication: Vitamin supplementation
     Dosage: 1 DOSAGE FORM, QD (FROM 3 OR 4 YEARS)
     Route: 048
  3. BONE CARE [Concomitant]
     Active Substance: ATRACTYLODES LANCEA ROOT
     Indication: Vitamin supplementation
     Dosage: 1 DOSAGE FORM, QD (FROM 3 OR 4 YEARS)
     Route: 048
  4. VITAMIN B COMPLEX [Concomitant]
     Active Substance: CYANOCOBALAMIN\DEXPANTHENOL\NIACINAMIDE\PYRIDOXINE HYDROCHLORIDE\RIBOFLAVIN 5^-PHOSPHATE SODIUM\THIA
     Indication: Vitamin B12 deficiency
     Dosage: UNK (2 INJECTIONS WEEKLY) FROM 1 YEAR
     Route: 030

REACTIONS (8)
  - Multiple sclerosis relapse [Not Recovered/Not Resolved]
  - Hypoaesthesia [Not Recovered/Not Resolved]
  - Hypoaesthesia eye [Not Recovered/Not Resolved]
  - Cerebral atrophy [Unknown]
  - Central nervous system lesion [Unknown]
  - Condition aggravated [Unknown]
  - Alopecia [Not Recovered/Not Resolved]
  - Drug ineffective [Not Recovered/Not Resolved]

NARRATIVE: CASE EVENT DATE: 20240801
